FAERS Safety Report 19450082 (Version 2)
Quarter: 2021Q3

REPORT INFORMATION
  Report Type: Spontaneous
  Country: JP (occurrence: JP)
  Receive Date: 20210622
  Receipt Date: 20210721
  Transmission Date: 20211014
  Serious: Yes (Other)
  Sender: FDA-Public Use
  Company Number: JP-PFIZER INC-2021624004

PATIENT
  Age: 60 Year
  Sex: Female

DRUGS (4)
  1. IBRANCE [Suspect]
     Active Substance: PALBOCICLIB
     Dosage: 75 MG
     Route: 048
     Dates: start: 20210705
  2. FASLODEX [Concomitant]
     Active Substance: FULVESTRANT
  3. ERYTHROCIN [ERYTHROMYCIN] [Concomitant]
     Active Substance: ERYTHROMYCIN
  4. IBRANCE [Suspect]
     Active Substance: PALBOCICLIB
     Indication: BREAST CANCER METASTATIC
     Dosage: 125 MG, DAILY (5 TABLETS)
     Route: 048
     Dates: start: 202104

REACTIONS (4)
  - Neuropathy peripheral [Not Recovered/Not Resolved]
  - Stomatitis [Not Recovered/Not Resolved]
  - Depression [Unknown]
  - Neutrophil count decreased [Unknown]

NARRATIVE: CASE EVENT DATE: 20210517
